FAERS Safety Report 4742823-5 (Version None)
Quarter: 2005Q3

REPORT INFORMATION
  Report Type: 
  Country: None (occurrence: None)
  Receive Date: 20050811
  Receipt Date: 20050706
  Transmission Date: 20060218
  Serious: Yes (Life-Threatening)
  Sender: FDA-Public Use
  Company Number: JP-GLAXOSMITHKLINE-B0387064A

PATIENT
  Sex: Male
  Weight: 80 kg

DRUGS (4)
  1. PAXIL [Suspect]
     Dosage: 1360MG PER DAY
     Route: 048
     Dates: start: 20050706, end: 20050706
  2. ZYPREXA [Suspect]
     Dosage: 200MG PER DAY
     Route: 048
     Dates: start: 20050706, end: 20050706
  3. ROHYPNOL [Suspect]
     Dosage: 20MG PER DAY
     Route: 048
     Dates: start: 20050706, end: 20050706
  4. SILECE [Concomitant]
     Route: 048

REACTIONS (8)
  - BLOOD PRESSURE DECREASED [None]
  - COMA [None]
  - OVERDOSE [None]
  - PNEUMONIA ASPIRATION [None]
  - PYREXIA [None]
  - RESPIRATORY DEPRESSION [None]
  - SHOCK [None]
  - SUICIDE ATTEMPT [None]
